FAERS Safety Report 7997997-X (Version None)
Quarter: 2011Q4

REPORT INFORMATION
  Report Type: 
  Country: None (occurrence: None)
  Receive Date: 20111221
  Receipt Date: 20110707
  Transmission Date: 20120403
  Serious: No
  Sender: FDA-Public Use
  Company Number: US-GLAXOSMITHKLINE-A0859401A

PATIENT
  Age: 68 Year
  Sex: Male

DRUGS (2)
  1. LOVAZA [Suspect]
     Indication: HIGH DENSITY LIPOPROTEIN DECREASED
     Dosage: 1CAP THREE TIMES PER DAY
     Route: 048
     Dates: start: 20100428
  2. UNKNOWN [Concomitant]

REACTIONS (2)
  - WEIGHT INCREASED [None]
  - NECK PAIN [None]
